FAERS Safety Report 14254587 (Version 3)
Quarter: 2018Q1

REPORT INFORMATION
  Report Type: Spontaneous
  Country: US (occurrence: US)
  Receive Date: 20171206
  Receipt Date: 20180124
  Transmission Date: 20180508
  Serious: No
  Sender: FDA-Public Use
  Company Number: US-PFIZER INC-2017518755

PATIENT
  Age: 8 Year
  Sex: Female
  Weight: 24.94 kg

DRUGS (3)
  1. GENOTROPIN [Suspect]
     Active Substance: SOMATROPIN
     Dosage: 1.1 MG, DAILY; (1.1 MG/DAY)
     Dates: start: 201708
  2. GENOTROPIN [Suspect]
     Active Substance: SOMATROPIN
     Dosage: 1.1 MG, UNK (ONCE)
     Route: 058
  3. GENOTROPIN [Suspect]
     Active Substance: SOMATROPIN
     Indication: GROWTH HORMONE DEFICIENCY
     Dosage: 1.1 MG, DAILY; (1.1 MG/DAY)
     Dates: start: 201608

REACTIONS (4)
  - Device issue [Unknown]
  - Underdose [Unknown]
  - Drug dose omission [Unknown]
  - Drug ineffective [Unknown]
